FAERS Safety Report 5635136-0 (Version None)
Quarter: 2008Q1

REPORT INFORMATION
  Report Type: 
  Country: None (occurrence: None)
  Receive Date: 20080222
  Receipt Date: 20080212
  Transmission Date: 20080703
  Serious: Yes (Death, Other)
  Sender: FDA-Public Use
  Company Number: JP-PFIZER INC-2008013538

PATIENT
  Age: 61 Year
  Sex: Female

DRUGS (2)
  1. VFEND [Suspect]
     Route: 042
  2. BIAPENEM [Concomitant]
     Route: 042

REACTIONS (2)
  - HAEMOPTYSIS [None]
  - RESPIRATORY FAILURE [None]
